FAERS Safety Report 8308400-4 (Version None)
Quarter: 2012Q2

REPORT INFORMATION
  Report Type: 
  Country: None (occurrence: None)
  Receive Date: 20120424
  Receipt Date: 20120412
  Transmission Date: 20120825
  Serious: Yes (Hospitalization)
  Sender: FDA-Public Use
  Company Number: FR-MERCK-1204USA00893

PATIENT
  Age: 80 Year
  Sex: Male

DRUGS (21)
  1. ACETAMINOPHEN [Concomitant]
     Indication: PAIN
     Route: 065
  2. IMOVANE [Concomitant]
     Dosage: 1 DOSAGE FORM
     Route: 065
  3. NITRODERM [Concomitant]
     Dosage: 1 PATCH
     Route: 065
  4. HUMALOG [Concomitant]
     Route: 065
     Dates: start: 20110601, end: 20120209
  5. PRAVASTATIN SODIUM [Suspect]
     Indication: DYSLIPIDAEMIA
     Route: 048
     Dates: start: 20111224
  6. CLOPIDOGREL [Concomitant]
     Route: 065
  7. ARANESP [Suspect]
     Indication: ANAEMIA
     Route: 058
     Dates: start: 20111025, end: 20120116
  8. FUROSEMIDE [Concomitant]
     Route: 065
  9. VITAMIN D [Concomitant]
     Dosage: ONE VIAL EVERY 15 DAYS
     Route: 065
  10. EPOETIN [Concomitant]
     Indication: ANAEMIA
     Dosage: 1 VIAL EVEY 15 DAYS
     Route: 065
     Dates: start: 20110601, end: 20120101
  11. MAG 2 [Suspect]
     Indication: MINERAL SUPPLEMENTATION
     Route: 048
     Dates: start: 20111224, end: 20120106
  12. POLYETHYLENE GLYCOL [Concomitant]
     Indication: CONSTIPATION
     Dosage: ONE SACHET
     Route: 065
  13. LANTUS [Concomitant]
     Route: 065
     Dates: start: 20110601, end: 20120209
  14. NEXIUM [Concomitant]
     Route: 065
     Dates: start: 20110701
  15. AMLODIPINE [Concomitant]
     Route: 065
  16. INVANZ [Suspect]
     Indication: INFECTION
     Route: 030
     Dates: start: 20111226, end: 20120116
  17. DIAMICRON [Suspect]
     Indication: TYPE 2 DIABETES MELLITUS
     Dosage: INCREASED
     Route: 048
     Dates: start: 20120109, end: 20120208
  18. DIAMICRON [Suspect]
     Route: 065
     Dates: start: 20120209
  19. ASPIRIN [Concomitant]
     Route: 048
  20. OXYCODONE HCL [Concomitant]
     Indication: PAIN
     Route: 065
  21. PERINDOPRIL [Concomitant]
     Route: 065

REACTIONS (1)
  - PANCYTOPENIA [None]
